FAERS Safety Report 9708571 (Version 5)
Quarter: 2014Q1

REPORT INFORMATION
  Report Type: Spontaneous
  Country: CZ (occurrence: CZ)
  Receive Date: 20131125
  Receipt Date: 20140203
  Transmission Date: 20141002
  Serious: Yes (Other)
  Sender: FDA-Public Use
  Company Number: CZ-NOVOPROD-392666

PATIENT
  Age: 42 Year
  Sex: Male
  Weight: 82 kg

DRUGS (4)
  1. NOVORAPID FLEXPEN [Suspect]
     Indication: DIABETES MELLITUS
     Dosage: UNK
     Route: 058
     Dates: start: 20130910
  2. NOVORAPID FLEXPEN [Suspect]
     Dosage: UNK
     Dates: start: 20131015
  3. LEVEMIR [Concomitant]
     Route: 058
  4. LEVEMIR [Concomitant]
     Route: 058

REACTIONS (2)
  - Thirst [Not Recovered/Not Resolved]
  - Drug ineffective [Not Recovered/Not Resolved]
